FAERS Safety Report 12618365 (Version 1)
Quarter: 2016Q3

REPORT INFORMATION
  Report Type: Spontaneous
  Country: US (occurrence: US)
  Receive Date: 20160803
  Receipt Date: 20160803
  Transmission Date: 20161109
  Serious: No
  Sender: FDA-Public Use
  Company Number: US-PFIZER INC-2016246504

PATIENT
  Age: 66 Year
  Sex: Female

DRUGS (4)
  1. AROMASIN [Suspect]
     Active Substance: EXEMESTANE
     Indication: BREAST CANCER FEMALE
  2. AROMASIN [Suspect]
     Active Substance: EXEMESTANE
     Indication: BREAST CANCER METASTATIC
     Dosage: 25 MG, 1X/DAY
  3. AROMASIN [Suspect]
     Active Substance: EXEMESTANE
     Indication: LUNG NEOPLASM MALIGNANT
  4. AROMASIN [Suspect]
     Active Substance: EXEMESTANE
     Indication: ADRENAL GLAND CANCER

REACTIONS (2)
  - Breast cancer metastatic [Unknown]
  - Disease progression [Unknown]
